FAERS Safety Report 22186078 (Version 5)
Quarter: 2023Q2

REPORT INFORMATION
  Report Type: Spontaneous
  Country: US (occurrence: US)
  Receive Date: 20230407
  Receipt Date: 20230620
  Transmission Date: 20230721
  Serious: No
  Sender: FDA-Public Use
  Company Number: US-KARYOPHARM-2023KPT000934

PATIENT

DRUGS (15)
  1. XPOVIO [Suspect]
     Active Substance: SELINEXOR
     Indication: Plasma cell myeloma
     Dosage: 100 MG, WEEKLY
     Route: 048
     Dates: start: 20230306, end: 20230320
  2. XPOVIO [Suspect]
     Active Substance: SELINEXOR
     Dosage: 80 MG, WEEKLY
     Route: 048
     Dates: start: 202304, end: 20230502
  3. XPOVIO [Suspect]
     Active Substance: SELINEXOR
     Dosage: 50 MG, WEEKLY
     Route: 048
     Dates: start: 20230503, end: 20230510
  4. XPOVIO [Suspect]
     Active Substance: SELINEXOR
     Dosage: 40 MG, WEEKLY
     Route: 048
     Dates: start: 20230524, end: 20230524
  5. ACYCLOVIR SODIUM [Concomitant]
     Active Substance: ACYCLOVIR SODIUM
  6. AMLODIPINE [Concomitant]
     Active Substance: AMLODIPINE BESYLATE
  7. ATORVASTATIN [Concomitant]
     Active Substance: ATORVASTATIN
  8. CANNABIDIOL [Concomitant]
     Active Substance: CANNABIDIOL
  9. CARVEDILOL [Concomitant]
     Active Substance: CARVEDILOL
  10. DEXAMETHASONE [Concomitant]
     Active Substance: DEXAMETHASONE
  11. ELIQUIS [Concomitant]
     Active Substance: APIXABAN
  12. OLANZAPINE [Concomitant]
     Active Substance: OLANZAPINE
  13. LACTOBACILLUS ACIDOPHILUS [Concomitant]
     Active Substance: LACTOBACILLUS ACIDOPHILUS
  14. ONDANSETRON [Concomitant]
     Active Substance: ONDANSETRON
  15. VARUBI [ROLAPITANT HYDROCHLORIDE MONOHYDRATE] [Concomitant]

REACTIONS (4)
  - Blood glucose increased [Unknown]
  - Pollakiuria [Unknown]
  - Fatigue [Not Recovered/Not Resolved]
  - Thrombocytopenia [Not Recovered/Not Resolved]

NARRATIVE: CASE EVENT DATE: 20230301
